FAERS Safety Report 19234956 (Version 2)
Quarter: 2021Q3

REPORT INFORMATION
  Report Type: Spontaneous
  Country: US (occurrence: US)
  Receive Date: 20210509
  Receipt Date: 20210902
  Transmission Date: 20211014
  Serious: No
  Sender: FDA-Public Use
  Company Number: US-CELGENEUS-USA-20210407329

PATIENT
  Sex: Female
  Weight: 72.64 kg

DRUGS (3)
  1. REVLIMID [Suspect]
     Active Substance: LENALIDOMIDE
     Indication: PLASMA CELL MYELOMA
     Dosage: 25 MILLIGRAM
     Route: 048
     Dates: start: 20160513
  2. REVLIMID [Suspect]
     Active Substance: LENALIDOMIDE
     Dosage: 10 MILLIGRAM
     Route: 048
     Dates: start: 201902
  3. REVLIMID [Suspect]
     Active Substance: LENALIDOMIDE
     Dosage: 25?20 MILLIGRAM
     Route: 048
     Dates: start: 201609

REACTIONS (15)
  - Arthralgia [Unknown]
  - Feeling abnormal [Unknown]
  - Diarrhoea [Unknown]
  - Hypertension [Unknown]
  - Pyrexia [Unknown]
  - Illness [Unknown]
  - Irritable bowel syndrome [Unknown]
  - Nausea [Unknown]
  - Abdominal pain upper [Unknown]
  - Product dose omission issue [Unknown]
  - Asthenia [Unknown]
  - Spinal disorder [Unknown]
  - Headache [Unknown]
  - Infection [Unknown]
  - Pain in extremity [Unknown]

NARRATIVE: CASE EVENT DATE: 2021
